FAERS Safety Report 5518690-9 (Version None)
Quarter: 2007Q4

REPORT INFORMATION
  Report Type: 
  Country: None (occurrence: None)
  Receive Date: 20071115
  Receipt Date: 20070727
  Transmission Date: 20080405
  Serious: Yes (Hospitalization)
  Sender: FDA-Public Use
  Company Number: DE-SHR-DE-2007-027293

PATIENT
  Age: 15 Year
  Sex: Female
  Weight: 56.4 kg

DRUGS (2)
  1. YASMIN [Suspect]
     Indication: ORAL CONTRACEPTION
     Dosage: 1 TAB(S), 21D/28D
     Route: 048
     Dates: start: 20070701
  2. ZITHROMAX [Concomitant]
     Dates: start: 20070715, end: 20070717

REACTIONS (2)
  - HALLUCINATION [None]
  - THINKING ABNORMAL [None]
